FAERS Safety Report 24431720 (Version 1)
Quarter: 2024Q4

REPORT INFORMATION
  Report Type: Spontaneous
  Country: CA (occurrence: CA)
  Receive Date: 20241014
  Receipt Date: 20241014
  Transmission Date: 20250115
  Serious: Yes (Hospitalization, Other)
  Sender: ACCORD
  Company Number: None

PATIENT
  Age: 62 Year
  Sex: Female
  Weight: 86 kg

DRUGS (1)
  1. METHOTREXATE [Suspect]
     Active Substance: METHOTREXATE
     Indication: Dermatitis atopic
     Dosage: 1 EVERY 1 WEEKS
     Route: 065

REACTIONS (4)
  - Fall [Unknown]
  - Muscle spasms [Unknown]
  - Off label use [Unknown]
  - Spinal fracture [Unknown]
